FAERS Safety Report 19472414 (Version 1)
Quarter: 2021Q2

REPORT INFORMATION
  Report Type: Report from Study
  Country: DE (occurrence: DE)
  Receive Date: 20210629
  Receipt Date: 20210629
  Transmission Date: 20210717
  Serious: Yes (Other)
  Sender: FDA-Public Use
  Company Number: NVSC2021DE138424

PATIENT
  Age: 31 Year
  Sex: Female

DRUGS (2)
  1. METFORMIN [Suspect]
     Active Substance: METFORMIN HYDROCHLORIDE
     Indication: PRODUCT USED FOR UNKNOWN INDICATION
     Dosage: UNK
     Route: 065
  2. GALVUS [Suspect]
     Active Substance: VILDAGLIPTIN
     Indication: PRODUCT USED FOR UNKNOWN INDICATION
     Dosage: UNK
     Route: 065

REACTIONS (7)
  - Coronary artery disease [Unknown]
  - Peripheral arterial occlusive disease [Unknown]
  - Hyperglycaemia [Unknown]
  - Transient ischaemic attack [Unknown]
  - Angina pectoris [Unknown]
  - Increased appetite [Unknown]
  - Hypoglycaemia [Unknown]
